FAERS Safety Report 23035713 (Version 1)
Quarter: 2023Q4

REPORT INFORMATION
  Report Type: Spontaneous
  Country: US (occurrence: US)
  Receive Date: 20231006
  Receipt Date: 20231006
  Transmission Date: 20240109
  Serious: No
  Sender: FDA-Public Use
  Company Number: US-BRISTOL-MYERS SQUIBB COMPANY-2023-141470

PATIENT
  Age: 72 Year
  Sex: Female
  Weight: 101.6 kg

DRUGS (1)
  1. REVLIMID [Suspect]
     Active Substance: LENALIDOMIDE
     Indication: Product used for unknown indication
     Dosage: ONCE DAILY
     Route: 048

REACTIONS (4)
  - Illness [Recovering/Resolving]
  - Muscle disorder [Recovering/Resolving]
  - Chromaturia [Recovering/Resolving]
  - Off label use [Unknown]
